FAERS Safety Report 16553969 (Version 1)
Quarter: 2019Q3

REPORT INFORMATION
  Report Type: Spontaneous
  Country: FJ (occurrence: FJ)
  Receive Date: 20190710
  Receipt Date: 20190710
  Transmission Date: 20191004
  Serious: Yes (Other)
  Sender: FDA-Public Use
  Company Number: FJ-IMPAX LABORATORIES, LLC-2019-IPXL-01377

PATIENT
  Sex: Female

DRUGS (2)
  1. DIETHYLCARBAMAZINE [Suspect]
     Active Substance: DIETHYLCARBAMAZINE
     Indication: FILARIASIS LYMPHATIC
     Dosage: 6 MILLIGRAM/KILOGRAM, SINGLE DOSE
     Route: 065
  2. ALBENZA [Suspect]
     Active Substance: ALBENDAZOLE
     Indication: FILARIASIS LYMPHATIC
     Dosage: 400 MILLIGRAM, SINGLE FIXED DOSE
     Route: 065

REACTIONS (3)
  - Off label use [Unknown]
  - Hyperglycaemia [Unknown]
  - Exposure during pregnancy [Unknown]
